FAERS Safety Report 10024893 (Version 2)
Quarter: 2014Q2

REPORT INFORMATION
  Report Type: Spontaneous
  Country: US (occurrence: US)
  Receive Date: 20140320
  Receipt Date: 20140610
  Transmission Date: 20141212
  Serious: No
  Sender: FDA-Public Use
  Company Number: US-009507513-1403USA000656

PATIENT
  Sex: Female
  Weight: 47.62 kg

DRUGS (3)
  1. CLARITIN REDITABS [Suspect]
     Indication: ALLERGY TO ANIMAL
     Dosage: 10 MG, PRN
     Route: 048
  2. CLARITIN REDITABS [Suspect]
     Indication: SNEEZING
  3. CLARITIN REDITABS [Suspect]
     Indication: LACRIMATION INCREASED

REACTIONS (1)
  - Drug ineffective [Unknown]
